FAERS Safety Report 12400906 (Version 1)
Quarter: 2016Q2

REPORT INFORMATION
  Report Type: Spontaneous
  Country: US (occurrence: None)
  Receive Date: 20160524
  Receipt Date: 20160524
  Transmission Date: 20160815
  Serious: Yes (Disabling)
  Sender: FDA-Public Use
  Company Number: None

PATIENT
  Age: 61 Year
  Sex: Female
  Weight: 52.16 kg

DRUGS (4)
  1. MULTI [Concomitant]
  2. GABAPENTIN 100MG [Suspect]
     Active Substance: GABAPENTIN
     Indication: NEURALGIA
     Route: 048
     Dates: start: 20160408, end: 20160415
  3. VITAMIN D3 [Concomitant]
     Active Substance: CHOLECALCIFEROL
  4. RESVERATROL [Concomitant]
     Active Substance: RESVERATROL

REACTIONS (1)
  - Palpitations [None]

NARRATIVE: CASE EVENT DATE: 20160408
